FAERS Safety Report 23103398 (Version 1)
Quarter: 2023Q4

REPORT INFORMATION
  Report Type: Spontaneous
  Country: US (occurrence: None)
  Receive Date: 20231022
  Receipt Date: 20231022
  Transmission Date: 20240110
  Serious: Yes (Hospitalization)
  Sender: FDA-Public Use
  Company Number: None

PATIENT
  Age: 79 Year
  Sex: Male

DRUGS (1)
  1. METHOTREXATE SODIUM [Suspect]
     Active Substance: METHOTREXATE SODIUM
     Dates: start: 20041202, end: 20121018

REACTIONS (6)
  - Interstitial lung disease [None]
  - Pulmonary toxicity [None]
  - Aspiration [None]
  - Gastrooesophageal reflux disease [None]
  - Rhinitis allergic [None]
  - Pulmonary radiation injury [None]

NARRATIVE: CASE EVENT DATE: 20120913
